FAERS Safety Report 10067891 (Version 2)
Quarter: 2014Q2

REPORT INFORMATION
  Report Type: Report from Study
  Country: US (occurrence: US)
  Receive Date: 20140409
  Receipt Date: 20140422
  Transmission Date: 20141212
  Serious: Yes (Hospitalization)
  Sender: FDA-Public Use
  Company Number: US-ACTELION-A-NJ2014-96849

PATIENT
  Age: 50 Year
  Sex: Female

DRUGS (2)
  1. TRACLEER [Suspect]
     Indication: PULMONARY ARTERIAL HYPERTENSION
     Dosage: UNK
     Route: 048
     Dates: start: 20110125
  2. TRACLEER [Suspect]
     Dosage: UNK
     Route: 048

REACTIONS (3)
  - Pancreatic cyst [Recovered/Resolved]
  - Abdominal pain [Recovered/Resolved]
  - Drug dose omission [Recovering/Resolving]
